FAERS Safety Report 6567801-5 (Version None)
Quarter: 2010Q1

REPORT INFORMATION
  Report Type: 
  Country: None (occurrence: None)
  Receive Date: 20100203
  Receipt Date: 20100125
  Transmission Date: 20100710
  Serious: Yes (Hospitalization, Other)
  Sender: FDA-Public Use
  Company Number: DE-JNJFOC-20091106298

PATIENT
  Age: 45 Year
  Sex: Male

DRUGS (7)
  1. TOPAMAX [Suspect]
     Indication: PARTIAL SEIZURES
     Route: 048
     Dates: start: 20070101
  2. TOPAMAX [Suspect]
     Route: 048
     Dates: start: 20070101
  3. TOPAMAX [Suspect]
     Route: 048
     Dates: start: 20070101
  4. TOPAMAX [Suspect]
     Route: 048
     Dates: start: 20070101
  5. FRISIUM [Concomitant]
     Indication: PARTIAL SEIZURES
     Route: 048
  6. PANTOPRAZOL [Concomitant]
     Indication: GASTROOESOPHAGEAL REFLUX PROPHYLAXIS
     Route: 048
  7. OXCARBAZEPINE [Concomitant]
     Indication: PARTIAL SEIZURES
     Route: 048

REACTIONS (2)
  - AMMONIA INCREASED [None]
  - OVERDOSE [None]
